FAERS Safety Report 9426360 (Version 1)
Quarter: 2013Q3

REPORT INFORMATION
  Report Type: Spontaneous
  Country: SA (occurrence: SA)
  Receive Date: 20130730
  Receipt Date: 20130730
  Transmission Date: 20140515
  Serious: Yes (Other)
  Sender: FDA-Public Use
  Company Number: SA-ROCHE-1248688

PATIENT
  Age: 45 Year
  Sex: Female

DRUGS (2)
  1. TRASTUZUMAB [Suspect]
     Indication: BREAST CANCER
     Route: 065
  2. TAMOXIFEN [Concomitant]

REACTIONS (4)
  - Stomatitis [Recovered/Resolved]
  - Neutropenia [Recovered/Resolved]
  - Sepsis [Unknown]
  - Pyrexia [Recovered/Resolved]
